FAERS Safety Report 14575615 (Version 2)
Quarter: 2018Q1

REPORT INFORMATION
  Report Type: Report from Study
  Country: IT (occurrence: IT)
  Receive Date: 20180227
  Receipt Date: 20180323
  Transmission Date: 20180509
  Serious: Yes (Other)
  Sender: FDA-Public Use
  Company Number: IT-ACCORD-063987

PATIENT
  Age: 42 Year
  Sex: Female

DRUGS (2)
  1. LEVETIRACETAM. [Suspect]
     Active Substance: LEVETIRACETAM
     Indication: EPILEPSY
  2. OXCARBAZEPINE. [Suspect]
     Active Substance: OXCARBAZEPINE
     Indication: EPILEPSY

REACTIONS (1)
  - Abortion spontaneous [Unknown]
